FAERS Safety Report 7439433-8 (Version None)
Quarter: 2011Q2

REPORT INFORMATION
  Report Type: 
  Country: None (occurrence: None)
  Receive Date: 20110421
  Receipt Date: 20110421
  Transmission Date: 20111010
  Serious: Yes (Other)
  Sender: FDA-Public Use
  Company Number: None

PATIENT
  Age: 36 Year
  Sex: Female
  Weight: 70.3075 kg

DRUGS (1)
  1. LEVAQUIN [Suspect]
     Indication: PNEUMONIA
     Dosage: 750 MG ONCE PER DAY PO   6 DOSES
     Route: 048
     Dates: start: 20110316, end: 20110321

REACTIONS (4)
  - NEUROPATHY PERIPHERAL [None]
  - PARAESTHESIA [None]
  - ASTHENIA [None]
  - HYPOAESTHESIA [None]
